FAERS Safety Report 5428154-9 (Version None)
Quarter: 2007Q3

REPORT INFORMATION
  Report Type: 
  Country: None (occurrence: None)
  Receive Date: 20070828
  Receipt Date: 20070817
  Transmission Date: 20080115
  Serious: Yes (Other)
  Sender: FDA-Public Use
  Company Number: US-PFIZER INC-2007069043

PATIENT
  Sex: Female
  Weight: 77.1 kg

DRUGS (1)
  1. NORVASC [Suspect]
     Indication: HYPERTENSION

REACTIONS (4)
  - BRONCHITIS [None]
  - HYPERSENSITIVITY [None]
  - RHINITIS [None]
  - SINUSITIS [None]
